FAERS Safety Report 9857828 (Version 2)
Quarter: 2014Q1

REPORT INFORMATION
  Report Type: Spontaneous
  Country: US (occurrence: US)
  Receive Date: 20140131
  Receipt Date: 20140207
  Transmission Date: 20141002
  Serious: Yes (Other)
  Sender: FDA-Public Use
  Company Number: US-ROCHE-1341194

PATIENT
  Age: 84 Year
  Sex: Female

DRUGS (5)
  1. LUCENTIS [Suspect]
     Indication: AGE-RELATED MACULAR DEGENERATION
     Dosage: RIGHT EYE
     Route: 065
  2. LUCENTIS [Suspect]
     Indication: BLINDNESS
     Dosage: BOTH EYE
     Route: 065
  3. LUCENTIS [Suspect]
     Dosage: BOTH EYES
     Route: 031
  4. BABY ASPIRIN [Concomitant]
  5. ASPIRIN [Concomitant]
     Route: 065

REACTIONS (15)
  - Skin cancer [Unknown]
  - Medication error [Unknown]
  - Swelling face [Unknown]
  - Erythema [Recovered/Resolved]
  - Sensation of pressure [Unknown]
  - Nervousness [Recovered/Resolved]
  - Infection [Unknown]
  - Poor quality sleep [Unknown]
  - Dyspnoea [Unknown]
  - Hearing impaired [Unknown]
  - Neuropathy peripheral [Unknown]
  - Anxiety [Unknown]
  - Hearing impaired [Unknown]
  - Visual field defect [Unknown]
  - Visual brightness [Unknown]
